FAERS Safety Report 13562788 (Version 2)
Quarter: 2017Q2

REPORT INFORMATION
  Report Type: Spontaneous
  Country: BE (occurrence: BE)
  Receive Date: 20170519
  Receipt Date: 20170614
  Transmission Date: 20170830
  Serious: Yes (Other)
  Sender: FDA-Public Use
  Company Number: BE-ENDO PHARMACEUTICALS INC-2017-002889

PATIENT
  Age: 68 Year
  Sex: Female

DRUGS (2)
  1. PROPYLTHIOURACIL TABLETS 50 MG [Suspect]
     Active Substance: PROPYLTHIOURACIL
     Indication: TOXIC NODULAR GOITRE
     Dosage: 50 MG, DAILY
     Route: 065
  2. PROPYLTHIOURACIL TABLETS 50 MG [Suspect]
     Active Substance: PROPYLTHIOURACIL
     Indication: SECONDARY HYPERTHYROIDISM
     Dosage: 100 MG, DAILY
     Route: 065

REACTIONS (2)
  - Pyoderma gangrenosum [Recovered/Resolved]
  - Antineutrophil cytoplasmic antibody increased [Recovered/Resolved]
